FAERS Safety Report 7461850-0 (Version None)
Quarter: 2011Q2

REPORT INFORMATION
  Report Type: 
  Country: None (occurrence: None)
  Receive Date: 20110506
  Receipt Date: 20110503
  Transmission Date: 20111010
  Serious: Yes (Other)
  Sender: FDA-Public Use
  Company Number: US-PFIZER INC-2011095614

PATIENT
  Sex: Female

DRUGS (5)
  1. XANAX [Concomitant]
     Indication: DEPRESSION
     Dosage: UNK
  2. CHANTIX [Suspect]
     Indication: SMOKING CESSATION THERAPY
     Dosage: 0.5 MG, 1X/DAY
     Route: 048
     Dates: start: 20070101
  3. CHANTIX [Suspect]
     Dosage: UNK
     Route: 048
     Dates: start: 20080401
  4. CHANTIX [Suspect]
     Dosage: UNK
     Route: 048
     Dates: start: 20091201
  5. VITAMIN B1 TAB [Concomitant]
     Dosage: UNK

REACTIONS (2)
  - DEPRESSION [None]
  - ANXIETY [None]
